FAERS Safety Report 22160922 (Version 1)
Quarter: 2023Q1

REPORT INFORMATION
  Report Type: Spontaneous
  Country: US (occurrence: None)
  Receive Date: 20230330
  Receipt Date: 20230330
  Transmission Date: 20230418
  Serious: Yes (Other)
  Sender: FDA-Public Use
  Company Number: None

PATIENT
  Age: 57 Year
  Sex: Female
  Weight: 75.3 kg

DRUGS (1)
  1. LACOSAMIDE [Suspect]
     Active Substance: LACOSAMIDE
     Indication: Epilepsy
     Dosage: FREQUENCY : TWICE A DAY;?
     Route: 048
     Dates: start: 20220427, end: 20220430

REACTIONS (4)
  - Product substitution issue [None]
  - Tongue pruritus [None]
  - Hypoaesthesia oral [None]
  - Dyspnoea [None]

NARRATIVE: CASE EVENT DATE: 20220427
